FAERS Safety Report 5059415-3 (Version None)
Quarter: 2006Q3

REPORT INFORMATION
  Report Type: 
  Country: None (occurrence: None)
  Receive Date: 20060724
  Receipt Date: 20050524
  Transmission Date: 20061208
  Serious: No
  Sender: FDA-Public Use
  Company Number: US-AMGEN-KDL135907

PATIENT
  Age: 62 Year
  Sex: Female
  Weight: 63.6 kg

DRUGS (1)
  1. PROCRIT [Suspect]
     Indication: ANAEMIA OF MALIGNANT DISEASE
     Dates: start: 20050301

REACTIONS (2)
  - ASTHENIA [None]
  - BACK PAIN [None]
